FAERS Safety Report 5337639-5 (Version None)
Quarter: 2007Q2

REPORT INFORMATION
  Report Type: 
  Country: None (occurrence: None)
  Receive Date: 20070309
  Receipt Date: 20061102
  Transmission Date: 20071010
  Serious: Yes (Other)
  Sender: FDA-Public Use
  Company Number: US200611000548

PATIENT
  Age: 46 Year
  Sex: Female

DRUGS (5)
  1. GEMZAR [Suspect]
     Indication: OVARIAN CANCER
     Dosage: 1800 MG, INTRAVENOUS
     Route: 042
     Dates: start: 20060101
  2. KYTRIL [Concomitant]
  3. BENDARYL (DIPHENYDRAMINE HYDROCHLORIDE) [Concomitant]
  4. DEXAMETHASONE TAB [Concomitant]
  5. PEPCID [Concomitant]

REACTIONS (3)
  - HERPES ZOSTER [None]
  - RASH PRURITIC [None]
  - WHITE BLOOD CELL COUNT DECREASED [None]
